FAERS Safety Report 9035976 (Version 1)
Quarter: 2013Q1

REPORT INFORMATION
  Report Type: Report from Study
  Country: US (occurrence: US)
  Receive Date: 20130129
  Receipt Date: 20130129
  Transmission Date: 20140127
  Serious: No
  Sender: FDA-Public Use
  Company Number: US-ABBOTT-12P-163-0917580-00

PATIENT
  Sex: Female
  Weight: 91.71 kg

DRUGS (10)
  1. HUMIRA 40 MG/0.8 ML PEN [Suspect]
     Indication: PSORIATIC ARTHROPATHY
     Dates: start: 2010
  2. HUMIRA 40 MG/0.8 ML PEN [Suspect]
     Indication: PSORIASIS
  3. LYRICA [Concomitant]
     Indication: INTERVERTEBRAL DISC PROTRUSION
  4. LYRICA [Concomitant]
     Indication: NEUROPATHY PERIPHERAL
  5. AMLODIPINE W/BENAZEPRIL [Concomitant]
     Indication: HYPERTENSION
  6. LEXAPRO [Concomitant]
     Indication: ANXIETY
  7. KOMBIGLYZE [Concomitant]
     Indication: DIABETES MELLITUS
  8. UNKNOWN MEDICATION [Concomitant]
     Indication: INSOMNIA
  9. OMEPRAZOLE [Concomitant]
     Indication: GASTROOESOPHAGEAL REFLUX DISEASE
  10. UNKNOWN MEDICATION [Concomitant]
     Indication: HYPERSENSITIVITY

REACTIONS (4)
  - Increased tendency to bruise [Recovered/Resolved]
  - Blood blister [Recovered/Resolved]
  - Skin injury [Recovered/Resolved]
  - Skin haemorrhage [Recovered/Resolved]
